FAERS Safety Report 5279985-X (Version None)
Quarter: 2007Q1

REPORT INFORMATION
  Report Type: 
  Country: None (occurrence: None)
  Receive Date: 20070329
  Receipt Date: 20070327
  Transmission Date: 20070707
  Serious: Yes (Other)
  Sender: FDA-Public Use
  Company Number: US-JNJFOC-20070306418

PATIENT
  Sex: Male

DRUGS (2)
  1. MOTRIN IB [Suspect]
  2. MOTRIN IB [Suspect]
     Indication: PYREXIA

REACTIONS (1)
  - BLINDNESS TRANSIENT [None]
